FAERS Safety Report 9256863 (Version 1)
Quarter: 2013Q2

REPORT INFORMATION
  Report Type: Spontaneous
  Country: JP (occurrence: None)
  Receive Date: 20130418
  Receipt Date: 20130418
  Transmission Date: 20140414
  Serious: Yes (Hospitalization)
  Sender: FDA-Public Use
  Company Number: 2013035462

PATIENT
  Sex: Female

DRUGS (1)
  1. C1-INH INHIBITOR [Suspect]
     Indication: HEREDITARY ANGIOEDEMA

REACTIONS (3)
  - Premature rupture of membranes [None]
  - Maternal exposure during pregnancy [None]
  - Caesarean section [None]
